FAERS Safety Report 7179916-1 (Version None)
Quarter: 2010Q4

REPORT INFORMATION
  Report Type: 
  Country: None (occurrence: None)
  Receive Date: 20101221
  Receipt Date: 20101214
  Transmission Date: 20110411
  Serious: Yes (Hospitalization)
  Sender: FDA-Public Use
  Company Number: US-US-EMD SERONO, INC.-7022145

PATIENT
  Sex: Female

DRUGS (6)
  1. REBIF [Suspect]
     Indication: MULTIPLE SCLEROSIS
     Route: 058
     Dates: start: 20100806
  2. IRON [Concomitant]
     Indication: ANAEMIA
     Dates: start: 20100801, end: 20100101
  3. NORCO [Concomitant]
     Indication: PAIN
     Dates: start: 20100801
  4. BACLOFEN [Concomitant]
     Indication: MUSCLE SPASMS
     Dates: start: 20100801
  5. NEURONTIN [Concomitant]
     Indication: NEURALGIA
     Dates: start: 20100801
  6. COLACE [Concomitant]
     Indication: CONSTIPATION
     Dates: start: 20100801

REACTIONS (6)
  - DEPRESSION [None]
  - INJURY ASSOCIATED WITH DEVICE [None]
  - MOOD SWINGS [None]
  - MULTIPLE SCLEROSIS RELAPSE [None]
  - MYALGIA [None]
  - URINARY TRACT INFECTION [None]
